FAERS Safety Report 6028312-9 (Version None)
Quarter: 2009Q1

REPORT INFORMATION
  Report Type: 
  Country: None (occurrence: None)
  Receive Date: 20090106
  Receipt Date: 20081224
  Transmission Date: 20090719
  Serious: Yes (Hospitalization)
  Sender: FDA-Public Use
  Company Number: JP-PFIZER INC-2008161270

PATIENT

DRUGS (3)
  1. LIPITOR [Suspect]
     Indication: HYPERCHOLESTEROLAEMIA
     Dosage: UNK
     Route: 048
  2. GLIMEPIRIDE [Concomitant]
     Dosage: UNK
     Route: 048
  3. ACARBOSE [Concomitant]
     Dosage: UNK
     Route: 048

REACTIONS (1)
  - LIVER DISORDER [None]
